FAERS Safety Report 23725032 (Version 4)
Quarter: 2024Q3

REPORT INFORMATION
  Report Type: Report from Study
  Country: US (occurrence: US)
  Receive Date: 20240410
  Receipt Date: 20240802
  Transmission Date: 20241017
  Serious: No
  Sender: SANOFI AVENTIS
  Company Number: US-SA-2024SA102320

PATIENT
  Age: 74 Year
  Sex: Female

DRUGS (1)
  1. DUPILUMAB [Suspect]
     Active Substance: DUPILUMAB
     Indication: Neurodermatitis
     Dosage: 300 MG, QOW
     Route: 058
     Dates: start: 202403, end: 2024

REACTIONS (12)
  - Musculoskeletal stiffness [Unknown]
  - Pain [Unknown]
  - Abdominal pain lower [Unknown]
  - Hypoaesthesia [Unknown]
  - Constipation [Unknown]
  - Nausea [Unknown]
  - Myalgia [Unknown]
  - Dizziness [Unknown]
  - Swelling of eyelid [Unknown]
  - Vision blurred [Unknown]
  - Condition aggravated [Unknown]
  - Arthralgia [Unknown]

NARRATIVE: CASE EVENT DATE: 20240101
